FAERS Safety Report 7902358-5 (Version None)
Quarter: 2011Q4

REPORT INFORMATION
  Report Type: 
  Country: None (occurrence: None)
  Receive Date: 20111108
  Receipt Date: 20111026
  Transmission Date: 20120403
  Serious: Yes (Other)
  Sender: FDA-Public Use
  Company Number: FR-MYLANLABS-2011S1022533

PATIENT
  Age: 59 Year
  Sex: Female

DRUGS (1)
  1. CIPRO [Suspect]
     Indication: URINARY TRACT INFECTION
     Dosage: 1000 MG/DAY
     Route: 065

REACTIONS (2)
  - AUTOIMMUNE HEPATITIS [None]
  - HEPATIC FIBROSIS [None]
